FAERS Safety Report 7089043-X (Version None)
Quarter: 2010Q4

REPORT INFORMATION
  Report Type: 
  Country: None (occurrence: None)
  Receive Date: 20101108
  Receipt Date: 20101028
  Transmission Date: 20110411
  Serious: Yes (Congenital Anomaly)
  Sender: FDA-Public Use
  Company Number: A0891010A

PATIENT
  Sex: Male
  Weight: 1.6 kg

DRUGS (6)
  1. TRIZIVIR [Suspect]
     Indication: HIV INFECTION
     Dates: start: 20081129
  2. ISENTRESS [Suspect]
     Indication: HIV INFECTION
     Dosage: 800MGD PER DAY
     Dates: start: 20081129
  3. PREZISTA [Suspect]
     Indication: HIV INFECTION
     Dosage: 1200MGD PER DAY
     Dates: start: 20081129
  4. NORVIR [Suspect]
     Indication: HIV INFECTION
     Dosage: 200MGD PER DAY
     Dates: start: 20081129
  5. VIREAD [Suspect]
     Indication: HIV INFECTION
     Dosage: 245MGD PER DAY
     Dates: start: 20081129
  6. ANTIVIRAL [Suspect]

REACTIONS (6)
  - DRUG EXPOSURE DURING PREGNANCY [None]
  - HEMIVERTEBRA [None]
  - MATERNAL DRUGS AFFECTING FOETUS [None]
  - OESOPHAGEAL ATRESIA [None]
  - PREMATURE BABY [None]
  - SPINAL DEFORMITY [None]
